FAERS Safety Report 6067124-7 (Version None)
Quarter: 2009Q1

REPORT INFORMATION
  Report Type: 
  Country: None (occurrence: None)
  Receive Date: 20090203
  Receipt Date: 20090123
  Transmission Date: 20090719
  Serious: Yes (Other)
  Sender: FDA-Public Use
  Company Number: DSU-2009-00195

PATIENT
  Age: 85 Year
  Sex: Male
  Weight: 90.7194 kg

DRUGS (10)
  1. WELCHOL [Suspect]
     Indication: HYPERLIPIDAEMIA
     Dosage: 3750 MG (1250 MG, TID), PER ORAL
     Route: 048
     Dates: end: 20090101
  2. DIOVAN [Concomitant]
  3. ASPIRIN [Concomitant]
  4. DOXAZOSIN (DOXAZOSIN) (DOXAZOSIN) [Concomitant]
  5. DEXAMETHASONE (DEXAMETHASONE) (EYE DROPS) (DEXAMETHASONE) [Concomitant]
  6. VITAMIN D (ERGOCALCIFEROL) (ERGOCALCIFEROL) [Concomitant]
  7. CALCIUM WITH VITAMIN D (ERGOCALCIFEROL, CALCIUM PHOSPHATE, CALCIUM SOD [Concomitant]
  8. WARFARIN SODIUM [Concomitant]
  9. VYTORIN (EZETIMIBE AND SIMVASTATIN) [Concomitant]
  10. FOSAMAX PLUS D (ALENDRONATE SODIUM WITH CHOLECALCIFEROL) [Concomitant]

REACTIONS (5)
  - DYSPHAGIA [None]
  - DYSPNOEA [None]
  - FOREIGN BODY TRAUMA [None]
  - HYPOTHYROIDISM [None]
  - OESOPHAGEAL STENOSIS [None]
